FAERS Safety Report 5924233-8 (Version None)
Quarter: 2008Q4

REPORT INFORMATION
  Report Type: 
  Country: None (occurrence: None)
  Receive Date: 20081015
  Receipt Date: 20080930
  Transmission Date: 20090506
  Serious: Yes (Hospitalization)
  Sender: FDA-Public Use
  Company Number: 6045931

PATIENT
  Age: 91 Year
  Sex: Male

DRUGS (2)
  1. EMCOR (BISOPROLOL FUMARATE) [Suspect]
     Indication: DRUG USE FOR UNKNOWN INDICATION
     Dosage: (5 MG), ORAL
     Route: 048
  2. CITALOPRAM HYDROBROMIDE [Concomitant]

REACTIONS (5)
  - DEPRESSION [None]
  - EATING DISORDER [None]
  - HEADACHE [None]
  - TINNITUS [None]
  - WEIGHT DECREASED [None]
